FAERS Safety Report 7396149-4 (Version None)
Quarter: 2011Q2

REPORT INFORMATION
  Report Type: 
  Country: None (occurrence: None)
  Receive Date: 20110406
  Receipt Date: 20110327
  Transmission Date: 20111010
  Serious: No
  Sender: FDA-Public Use
  Company Number: US-B.I. PHARMACEUTICALS,INC./RIDGEFIELD-2011-BP-09270BP

PATIENT
  Sex: Male

DRUGS (3)
  1. PRADAXA [Suspect]
     Indication: ATRIAL FIBRILLATION
     Dosage: 300 MG
     Route: 048
     Dates: start: 20110306
  2. METANX [Concomitant]
     Indication: NEUROPATHY PERIPHERAL
     Dosage: 6 MG
     Route: 048
  3. CRESTOR [Concomitant]
     Indication: BLOOD CHOLESTEROL INCREASED
     Dosage: 20 MG
     Route: 048

REACTIONS (5)
  - STREPTOCOCCAL URINARY TRACT INFECTION [None]
  - DIPLOPIA [None]
  - HAEMATURIA [None]
  - HAEMORRHAGE [None]
  - HAEMORRHAGE URINARY TRACT [None]
